FAERS Safety Report 4482917-5 (Version None)
Quarter: 2004Q3

REPORT INFORMATION
  Report Type: 
  Country: None (occurrence: None)
  Receive Date: 20040921
  Receipt Date: 20040706
  Transmission Date: 20050211
  Serious: Yes (Hospitalization)
  Sender: FDA-Public Use
  Company Number: 163-20785-04070122(0)

PATIENT
  Age: 43 Year
  Sex: Female
  Weight: 67.2 kg

DRUGS (2)
  1. THALOMID [Suspect]
     Indication: METASTASES TO CENTRAL NERVOUS SYSTEM
     Dosage: 400 MILLIGRAM-1200 MILLIGRAM, QHS, ORAL
     Route: 048
     Dates: start: 20030721, end: 20040412
  2. RADIATION (CAPSULES) [Suspect]
     Indication: METASTASES TO CENTRAL NERVOUS SYSTEM
     Dosage: 2.5 GY, DAILY X5 DAYS/WK FOR 3 WEEKS, ORAL
     Route: 048
     Dates: start: 20030721, end: 20031125

REACTIONS (3)
  - NAUSEA [None]
  - PAIN [None]
  - VOMITING [None]
